FAERS Safety Report 23715497 (Version 2)
Quarter: 2025Q1

REPORT INFORMATION
  Report Type: Report from Study
  Country: IT (occurrence: IT)
  Receive Date: 20240407
  Receipt Date: 20250115
  Transmission Date: 20250408
  Serious: Yes (Other)
  Sender: BIOCON
  Company Number: None

PATIENT

DRUGS (4)
  1. TRASTUZUMAB [Suspect]
     Active Substance: TRASTUZUMAB
     Indication: Hormone receptor positive breast cancer
     Dosage: 280 MILLIGRAM, QWEEK, START OF THERAPY 10/31/2023 - WEEKLY THERAPY - 6 WEEKS
     Route: 042
     Dates: start: 20231205, end: 20231205
  2. TRASTUZUMAB [Suspect]
     Active Substance: TRASTUZUMAB
     Dosage: 280 MILLIGRAM, QWEEK, START OF THERAPY 31/10/2023 - WEEKLY THERAPY - 4 WEEKS
     Route: 042
     Dates: start: 20231121, end: 20231121
  3. PACLITAXEL [Suspect]
     Active Substance: PACLITAXEL
     Indication: Hormone receptor positive breast cancer
     Dosage: 140 MILLIGRAM, QWEEK, START OF THERAPY 10/31/2023 - WEEKLY THERAPY - 6 WEEKS
     Route: 042
     Dates: start: 20231205, end: 20231205
  4. PACLITAXEL [Suspect]
     Active Substance: PACLITAXEL
     Dosage: 140 MILLIGRAM, QWEEK, START OF THERAPY 31/10/2023 - WEEKLY THERAPY - 4 WEEKS
     Route: 042
     Dates: start: 20231121, end: 20231121

REACTIONS (4)
  - Leukopenia [Recovering/Resolving]
  - Paraesthesia [Recovering/Resolving]
  - Off label use [Recovering/Resolving]
  - Off label use [Recovering/Resolving]

NARRATIVE: CASE EVENT DATE: 20231121
